FAERS Safety Report 9801206 (Version 4)
Quarter: 2014Q1

REPORT INFORMATION
  Report Type: Spontaneous
  Country: FR (occurrence: FR)
  Receive Date: 20140107
  Receipt Date: 20140221
  Transmission Date: 20141002
  Serious: Yes (Death, Hospitalization, Other)
  Sender: FDA-Public Use
  Company Number: FR-PFIZER INC-2014002593

PATIENT
  Age: 83 Year
  Sex: Male

DRUGS (9)
  1. TRIATEC [Suspect]
     Dosage: 10 MG, 1X/DAY
     Route: 065
     Dates: start: 201305, end: 20131127
  2. FOSRENOL [Suspect]
     Dosage: UNK
     Route: 065
     Dates: start: 20130821
  3. DEROXAT [Suspect]
     Dosage: UNK
     Route: 065
     Dates: start: 201305, end: 201310
  4. LEXOMIL [Suspect]
     Dosage: UNK
     Route: 065
     Dates: start: 201305, end: 201310
  5. UN-ALPHA [Concomitant]
     Dosage: UNK
     Dates: start: 201210
  6. KARDEGIC [Concomitant]
     Dosage: UNK
     Dates: start: 201207
  7. TAHOR [Concomitant]
     Dosage: UNK
     Dates: start: 201207
  8. LASILIX SPECIAL [Concomitant]
     Dosage: UNK
     Dates: start: 201205, end: 201311
  9. LERCAN [Concomitant]
     Dosage: UNK
     Dates: start: 201311

REACTIONS (4)
  - Acute leukaemia [Fatal]
  - Leukopenia [Unknown]
  - Neutropenia [Unknown]
  - Lymphocyte count decreased [Unknown]
